FAERS Safety Report 11092676 (Version 1)
Quarter: 2015Q2

REPORT INFORMATION
  Report Type: Spontaneous
  Country: US (occurrence: None)
  Receive Date: 20150505
  Receipt Date: 20150505
  Transmission Date: 20150821
  Serious: No
  Sender: FDA-Public Use
  Company Number: None

PATIENT
  Age: 56 Year
  Sex: Female
  Weight: 75.75 kg

DRUGS (1)
  1. SUPREP BOWEL PREP [Suspect]
     Active Substance: MAGNESIUM SULFATE\POTASSIUM SULFATE\SODIUM SULFATE
     Indication: COLONOSCOPY
     Dosage: 2 6 OUNCE CONTAINTERS, ONCE DAILY, TAKEN BY MOUTH
     Route: 048
     Dates: start: 20150429, end: 20150430

REACTIONS (2)
  - Dehydration [None]
  - Body temperature decreased [None]

NARRATIVE: CASE EVENT DATE: 20150430
